FAERS Safety Report 7479574-2 (Version None)
Quarter: 2011Q2

REPORT INFORMATION
  Report Type: 
  Country: None (occurrence: None)
  Receive Date: 20110513
  Receipt Date: 20110504
  Transmission Date: 20111010
  Serious: Yes (Other)
  Sender: FDA-Public Use
  Company Number: GB-B.I. PHARMACEUTICALS,INC./RIDGEFIELD-2011-BP-05034BP

PATIENT
  Age: 14 Year
  Sex: Female

DRUGS (3)
  1. VIRAMUNE [Suspect]
     Indication: DRUG EXPOSURE DURING PREGNANCY
     Dosage: 200 MG
     Route: 048
     Dates: start: 20090707
  2. EPZICOM [Concomitant]
     Indication: ANTIRETROVIRAL THERAPY
     Route: 048
     Dates: start: 20080702
  3. STOCRIN [Concomitant]
     Indication: ANTIRETROVIRAL THERAPY
     Dosage: 600 MG
     Route: 048
     Dates: start: 20080702, end: 20090706

REACTIONS (1)
  - ABORTION INDUCED [None]
